FAERS Safety Report 6686209-5 (Version None)
Quarter: 2010Q2

REPORT INFORMATION
  Report Type: 
  Country: None (occurrence: None)
  Receive Date: 20100415
  Receipt Date: 20100415
  Transmission Date: 20101027
  Serious: Yes (Hospitalization)
  Sender: FDA-Public Use
  Company Number: None

PATIENT
  Sex: Male
  Weight: 67.9035 kg

DRUGS (4)
  1. AVASTIN [Suspect]
     Indication: ADENOCARCINOMA
     Dosage: 15 MG/KG -1040 MG- ONCE EVERY 21 DAYS IV DRIP
     Route: 041
     Dates: start: 20100324, end: 20100324
  2. AVASTIN [Suspect]
     Indication: NON-SMALL CELL LUNG CANCER
     Dosage: 15 MG/KG -1040 MG- ONCE EVERY 21 DAYS IV DRIP
     Route: 041
     Dates: start: 20100324, end: 20100324
  3. TARCEVA [Suspect]
     Indication: ADENOCARCINOMA
     Dosage: 150 MG ONCE DAILY PO
     Route: 048
     Dates: start: 20100324, end: 20100409
  4. TARCEVA [Suspect]
     Indication: NON-SMALL CELL LUNG CANCER
     Dosage: 150 MG ONCE DAILY PO
     Route: 048
     Dates: start: 20100324, end: 20100409

REACTIONS (1)
  - SMALL INTESTINAL PERFORATION [None]
